FAERS Safety Report 21928400 (Version 3)
Quarter: 2023Q1

REPORT INFORMATION
  Report Type: Spontaneous
  Country: TR (occurrence: TR)
  Receive Date: 20230130
  Receipt Date: 20230222
  Transmission Date: 20230417
  Serious: Yes (Other)
  Sender: FDA-Public Use
  Company Number: TR-BAUSCHBL-2023BNL000610

PATIENT
  Age: 76 Year
  Sex: Male

DRUGS (3)
  1. VYZULTA [Suspect]
     Active Substance: LATANOPROSTENE BUNOD
     Indication: Glaucoma
     Route: 047
     Dates: start: 20230105, end: 20230120
  2. TOMEC [Concomitant]
     Indication: Glaucoma
     Route: 047
     Dates: end: 20230120
  3. ARTELAC ADVANCED [Concomitant]
     Indication: Product used for unknown indication
     Dosage: AS NEEDED
     Route: 047
     Dates: end: 20230120

REACTIONS (1)
  - Herpes ophthalmic [Recovered/Resolved]

NARRATIVE: CASE EVENT DATE: 20230120
